FAERS Safety Report 20885648 (Version 1)
Quarter: 2022Q2

REPORT INFORMATION
  Report Type: Spontaneous
  Country: JP (occurrence: JP)
  Receive Date: 20220527
  Receipt Date: 20220527
  Transmission Date: 20220721
  Serious: Yes (Hospitalization)
  Sender: FDA-Public Use
  Company Number: JP-ALLERGAN-2216905US

PATIENT
  Sex: Male

DRUGS (1)
  1. SILODOSIN [Suspect]
     Active Substance: SILODOSIN
     Indication: Dysuria
     Route: 048

REACTIONS (2)
  - Prostate cancer [Not Recovered/Not Resolved]
  - Off label use [Unknown]
